FAERS Safety Report 9728929 (Version 1)
Quarter: 2013Q4

REPORT INFORMATION
  Report Type: Spontaneous
  Country: US (occurrence: US)
  Receive Date: 20131204
  Receipt Date: 20131204
  Transmission Date: 20140711
  Serious: Yes (Other)
  Sender: FDA-Public Use
  Company Number: US-PFIZER INC-2013344971

PATIENT
  Age: 87 Year
  Sex: Female
  Weight: 52.6 kg

DRUGS (2)
  1. PREMARIN [Suspect]
     Indication: VULVOVAGINAL DRYNESS
     Dosage: UNK
     Route: 067
     Dates: start: 20131122, end: 2013
  2. MAXZIDE [Concomitant]
     Indication: HYPERTENSION
     Dosage: 25 MG, UNK

REACTIONS (1)
  - Haemorrhage [Unknown]
